FAERS Safety Report 7131354-3 (Version None)
Quarter: 2010Q4

REPORT INFORMATION
  Report Type: 
  Country: None (occurrence: None)
  Receive Date: 20101201
  Receipt Date: 20100113
  Transmission Date: 20110411
  Serious: No
  Sender: FDA-Public Use
  Company Number: US-TYCO HEALTHCARE/MALLINCKRODT-T201000331

PATIENT
  Sex: Male

DRUGS (1)
  1. METHYLIN [Suspect]
     Dosage: UNK

REACTIONS (1)
  - RETCHING [None]
